FAERS Safety Report 7321894-6 (Version None)
Quarter: 2011Q1

REPORT INFORMATION
  Report Type: 
  Country: None (occurrence: None)
  Receive Date: 20110228
  Receipt Date: 20110223
  Transmission Date: 20110831
  Serious: Yes (Disabling, Other)
  Sender: FDA-Public Use
  Company Number: US-PFIZER INC-2007090223

PATIENT
  Age: 46 Year
  Sex: Male

DRUGS (2)
  1. GEODON [Suspect]
     Indication: DEPRESSION
  2. GEODON [Suspect]
     Indication: ANXIETY
     Dosage: UNK
     Dates: start: 20050101, end: 20051011

REACTIONS (4)
  - TARDIVE DYSKINESIA [None]
  - PAIN [None]
  - NERVE INJURY [None]
  - HEADACHE [None]
